FAERS Safety Report 12535770 (Version 4)
Quarter: 2017Q2

REPORT INFORMATION
  Report Type: Spontaneous
  Country: KR (occurrence: KR)
  Receive Date: 20160707
  Receipt Date: 20170620
  Transmission Date: 20170830
  Serious: Yes (Hospitalization)
  Sender: FDA-Public Use
  Company Number: KR-ROCHE-1787920

PATIENT
  Age: 48 Year
  Sex: Female
  Weight: 64.1 kg

DRUGS (39)
  1. DOCETAXEL. [Suspect]
     Active Substance: DOCETAXEL
     Route: 042
     Dates: start: 20160325
  2. DOCETAXEL. [Suspect]
     Active Substance: DOCETAXEL
     Route: 042
     Dates: start: 20160527
  3. DEXAMETHASONE. [Concomitant]
     Active Substance: DEXAMETHASONE
     Dosage: PREMEDICATION FOR NEUROPATHY
     Route: 042
     Dates: start: 20160303
  4. NEURONTIN (SOUTH KOREA) [Concomitant]
     Route: 048
     Dates: start: 20160304
  5. TANTUM (SOUTH KOREA) [Concomitant]
     Dosage: PREVENTION OF STOMATITIS
     Route: 050
     Dates: start: 20160304
  6. PERJETA [Suspect]
     Active Substance: PERTUZUMAB
     Route: 042
     Dates: start: 20160506
  7. HERCEPTIN [Suspect]
     Active Substance: TRASTUZUMAB
     Indication: BREAST CANCER
     Route: 042
     Dates: start: 20160304
  8. NASERON [Concomitant]
     Dosage: PREMEDICATION FOR NAUSEA
     Route: 042
     Dates: start: 20160304
  9. LEUCOSTIM [Concomitant]
     Active Substance: FILGRASTIM
     Indication: NEUTROPENIA
     Route: 042
     Dates: start: 20160605, end: 20160606
  10. LEUCOSTIM [Concomitant]
     Active Substance: FILGRASTIM
     Route: 042
     Dates: start: 20160626, end: 20160627
  11. LEUCOSTIM [Concomitant]
     Active Substance: FILGRASTIM
     Route: 042
     Dates: start: 20160313, end: 20160313
  12. ONSERAN [Concomitant]
     Indication: NAUSEA
     Route: 042
     Dates: start: 20160514
  13. PERJETA [Suspect]
     Active Substance: PERTUZUMAB
     Route: 042
     Dates: start: 20160617
  14. DOCETAXEL. [Suspect]
     Active Substance: DOCETAXEL
     Route: 042
     Dates: start: 20160415
  15. CURAN [Concomitant]
     Active Substance: RANITIDINE HYDROCHLORIDE
     Dosage: PREVENTION FOR URTICARIA
     Route: 048
     Dates: start: 20160304
  16. LEUCOSTIM [Concomitant]
     Active Substance: FILGRASTIM
     Route: 042
     Dates: start: 20160425, end: 20160425
  17. EMEND [Concomitant]
     Active Substance: APREPITANT
     Indication: VOMITING
     Route: 048
     Dates: start: 20160605, end: 20160607
  18. SMECTA [Concomitant]
     Active Substance: MONTMORILLONITE
     Indication: DIARRHOEA
     Route: 048
     Dates: start: 20160617, end: 20160617
  19. PERJETA [Suspect]
     Active Substance: PERTUZUMAB
     Route: 042
     Dates: start: 20160415
  20. PERJETA [Suspect]
     Active Substance: PERTUZUMAB
     Route: 042
     Dates: start: 20160527
  21. HERCEPTIN [Suspect]
     Active Substance: TRASTUZUMAB
     Route: 042
     Dates: start: 20160325
  22. LEUCOSTIM [Concomitant]
     Active Substance: FILGRASTIM
     Route: 042
     Dates: start: 20160405, end: 20160405
  23. URSA [Concomitant]
     Indication: ALANINE AMINOTRANSFERASE INCREASED
  24. KETORAC [Concomitant]
     Indication: FEBRILE NEUTROPENIA
     Route: 042
     Dates: start: 20160304, end: 20160516
  25. HERCEPTIN [Suspect]
     Active Substance: TRASTUZUMAB
     Route: 042
     Dates: start: 20160415
  26. HERCEPTIN [Suspect]
     Active Substance: TRASTUZUMAB
     Route: 042
     Dates: start: 20160506
  27. HERCEPTIN [Suspect]
     Active Substance: TRASTUZUMAB
     Route: 042
     Dates: start: 20160527
  28. PERJETA [Suspect]
     Active Substance: PERTUZUMAB
     Indication: BREAST CANCER
     Route: 042
     Dates: start: 20160304
  29. PERJETA [Suspect]
     Active Substance: PERTUZUMAB
     Route: 042
     Dates: start: 20160325
  30. HERCEPTIN [Suspect]
     Active Substance: TRASTUZUMAB
     Route: 042
     Dates: start: 20160617
  31. SUSPEN ER [Concomitant]
     Dosage: PREMEDICATION FOR NEURALGIA
     Route: 048
     Dates: start: 20160304
  32. DOCETAXEL. [Suspect]
     Active Substance: DOCETAXEL
     Indication: BREAST CANCER
     Route: 042
     Dates: start: 20160304
  33. DOCETAXEL. [Suspect]
     Active Substance: DOCETAXEL
     Route: 042
     Dates: start: 20160506
  34. NEOPLATIN (SOUTH KOREA) [Concomitant]
     Indication: BREAST CANCER
     Route: 042
     Dates: start: 20160304
  35. KYTRIL [Concomitant]
     Active Substance: GRANISETRON HYDROCHLORIDE
     Dosage: PREVENTION FOR NAUSEA
     Route: 048
     Dates: start: 20160305
  36. MAXIPIME [Concomitant]
     Active Substance: CEFEPIME HYDROCHLORIDE
     Dosage: PREVENTION OF INFECTION
     Route: 042
     Dates: start: 20160313, end: 20160607
  37. URSA [Concomitant]
     Indication: ASPARTATE AMINOTRANSFERASE INCREASED
     Route: 048
     Dates: start: 20160425
  38. DOCETAXEL. [Suspect]
     Active Substance: DOCETAXEL
     Route: 042
     Dates: start: 20160617
  39. SANCUSO [Concomitant]
     Active Substance: GRANISETRON
     Dosage: PREMEDICATION FOR NAUSEA
     Route: 065
     Dates: start: 20160303

REACTIONS (6)
  - Asthenia [Recovered/Resolved]
  - Aspartate aminotransferase increased [Recovered/Resolved]
  - Cholecystitis acute [Recovered/Resolved]
  - Alanine aminotransferase increased [Recovered/Resolved]
  - Febrile neutropenia [Recovered/Resolved]
  - Diarrhoea [Recovered/Resolved]

NARRATIVE: CASE EVENT DATE: 20160312
